FAERS Safety Report 5476414-8 (Version None)
Quarter: 2007Q4

REPORT INFORMATION
  Report Type: 
  Country: None (occurrence: None)
  Receive Date: 20071003
  Receipt Date: 20070927
  Transmission Date: 20080405
  Serious: Yes (Hospitalization)
  Sender: FDA-Public Use
  Company Number: JP-MERCK-0709USA00973

PATIENT
  Age: 57 Year
  Sex: Female

DRUGS (5)
  1. ZETIA [Suspect]
     Indication: HYPERCHOLESTEROLAEMIA
     Route: 048
     Dates: start: 20070803
  2. CETRAXATE HYDROCHLORIDE [Concomitant]
     Route: 065
     Dates: start: 20070219
  3. MECOBALAMIN [Concomitant]
     Route: 065
     Dates: start: 20070219
  4. ROSUVASTATIN CALCIUM [Concomitant]
     Route: 065
     Dates: start: 20070219
  5. ZOLPIDEM TARTRATE [Concomitant]
     Route: 065
     Dates: start: 20070219

REACTIONS (4)
  - COLD SWEAT [None]
  - CONTUSION [None]
  - DIZZINESS [None]
  - FALL [None]
